FAERS Safety Report 5535876-8 (Version None)
Quarter: 2007Q4

REPORT INFORMATION
  Report Type: 
  Country: None (occurrence: None)
  Receive Date: 20071206
  Receipt Date: 20070622
  Transmission Date: 20080405
  Serious: Yes (Hospitalization)
  Sender: FDA-Public Use
  Company Number: US-AMGEN-STX223354

PATIENT
  Sex: Female

DRUGS (12)
  1. ENBREL [Suspect]
     Indication: RHEUMATOID ARTHRITIS
     Route: 058
     Dates: start: 20060119
  2. LAMISIL [Concomitant]
  3. MOBIC [Concomitant]
     Route: 048
  4. PREDNISONE TAB [Concomitant]
     Route: 048
  5. IBUPROFEN [Concomitant]
     Route: 048
  6. ADVIL LIQUI-GELS [Concomitant]
     Route: 048
  7. TYLENOL [Concomitant]
  8. LUNESTA [Concomitant]
     Route: 048
  9. VITAMINS, OTHER COMBINATIONS [Concomitant]
     Route: 048
  10. DICLOFENAC [Concomitant]
  11. MS CONTIN [Concomitant]
     Route: 048
  12. CITRACAL [Concomitant]
     Route: 048

REACTIONS (2)
  - HEPATIC AMOEBIASIS [None]
  - RHEUMATOID ARTHRITIS [None]
